FAERS Safety Report 4601651-1 (Version None)
Quarter: 2005Q1

REPORT INFORMATION
  Report Type: 
  Country: None (occurrence: None)
  Receive Date: 20050308
  Receipt Date: 20050225
  Transmission Date: 20050727
  Serious: Yes (Hospitalization, Other)
  Sender: FDA-Public Use
  Company Number: JP-BRISTOL-MYERS SQUIBB COMPANY-12884268

PATIENT
  Age: 50 Year
  Sex: Male

DRUGS (7)
  1. ENDOXAN [Suspect]
     Indication: DERMATOMYOSITIS
     Route: 041
     Dates: start: 20031028, end: 20031028
  2. ENDOXAN [Suspect]
     Indication: INTERSTITIAL LUNG DISEASE
     Route: 041
     Dates: start: 20031028, end: 20031028
  3. ENDOXAN [Suspect]
     Route: 048
     Dates: start: 20031029, end: 20031029
  4. PREDONINE [Suspect]
     Indication: INTERSTITIAL LUNG DISEASE
     Route: 048
     Dates: start: 20030911, end: 20050101
  5. SOLU-MEDROL [Concomitant]
     Indication: DERMATOMYOSITIS
     Route: 041
     Dates: start: 20030926, end: 20031023
  6. GASTER [Concomitant]
     Dates: start: 20030911
  7. LENDORM [Concomitant]
     Dates: start: 20030926, end: 20040701

REACTIONS (1)
  - TENDON RUPTURE [None]
